FAERS Safety Report 18114782 (Version 1)
Quarter: 2020Q3

REPORT INFORMATION
  Report Type: Spontaneous
  Country: US (occurrence: US)
  Receive Date: 20200805
  Receipt Date: 20200805
  Transmission Date: 20201103
  Serious: No
  Sender: FDA-Public Use
  Company Number: US-PFIZER INC-2020293014

PATIENT

DRUGS (2)
  1. IBUPROFEN. [Suspect]
     Active Substance: IBUPROFEN
     Indication: PAIN
     Dosage: UNK
  2. NAPROXEN. [Suspect]
     Active Substance: NAPROXEN
     Indication: PAIN
     Dosage: UNK

REACTIONS (1)
  - Drug ineffective [Unknown]
